FAERS Safety Report 7146988-X (Version None)
Quarter: 2010Q4

REPORT INFORMATION
  Report Type: 
  Country: None (occurrence: None)
  Receive Date: 20101209
  Receipt Date: 20100820
  Transmission Date: 20110411
  Serious: Yes (Death, Hospitalization)
  Sender: FDA-Public Use
  Company Number: US-ACTELION-A-NJ2010-35372

PATIENT
  Sex: Male

DRUGS (4)
  1. BOSENTAN TABLET 125 MG US [Suspect]
     Indication: PULMONARY ARTERIAL HYPERTENSION
     Dosage: 125 MG, BID
     Route: 048
     Dates: start: 20100301
  2. BOSENTAN TABLET 125 MG US [Suspect]
     Dosage: 62.5 MG, BID
     Route: 048
     Dates: start: 20100203, end: 20100301
  3. REVATIO [Concomitant]
  4. COUMADIN [Concomitant]

REACTIONS (5)
  - DEATH [None]
  - MELAENA [None]
  - PANCYTOPENIA [None]
  - RENAL FAILURE [None]
  - URINARY TRACT INFECTION [None]
